FAERS Safety Report 5771535-4 (Version None)
Quarter: 2008Q2

REPORT INFORMATION
  Report Type: 
  Country: None (occurrence: None)
  Receive Date: 20080611
  Receipt Date: 20080527
  Transmission Date: 20081010
  Serious: Yes (Disabling)
  Sender: FDA-Public Use
  Company Number: 2008S1009389

PATIENT
  Age: 50 Year
  Sex: Female

DRUGS (5)
  1. MIRTAZAPINE [Suspect]
     Indication: DRUG USE FOR UNKNOWN INDICATION
     Dosage: 30 MG;
     Dates: start: 20071101
  2. ACAMPROSTATE (ACAMPROSTATE) [Suspect]
     Indication: DRUG USE FOR UNKNOWN INDICATION
     Dosage: 666 MG;3 TIMES A DAY;
     Dates: start: 20070101
  3. DIAZEPAM [Suspect]
     Indication: DRUG USE FOR UNKNOWN INDICATION
     Dosage: 60 MG;
  4. VENLAFAXINE HCL [Suspect]
     Indication: DRUG USE FOR UNKNOWN INDICATION
     Dosage: 150 MG;
  5. ARIPIPRAZOLE [Suspect]
     Indication: DRUG USE FOR UNKNOWN INDICATION
     Dosage: 10 MG;DAILY

REACTIONS (1)
  - DEAFNESS NEUROSENSORY [None]
